FAERS Safety Report 9752268 (Version 2)
Quarter: 2013Q4

REPORT INFORMATION
  Report Type: Spontaneous
  Country: US (occurrence: US)
  Receive Date: 20131213
  Receipt Date: 20131213
  Transmission Date: 20140711
  Serious: No
  Sender: FDA-Public Use
  Company Number: US-MYLANLABS-2013S1020778

PATIENT
  Age: 83 Year
  Sex: Female
  Weight: 65.77 kg

DRUGS (2)
  1. CLOPIDOGREL TABLETS USP [Suspect]
     Indication: STENT PLACEMENT
     Route: 048
     Dates: start: 20130911, end: 20130912
  2. CLOPIDOGREL TABLETS USP [Suspect]
     Indication: ANGIOGRAM
     Route: 048
     Dates: start: 20130911, end: 20130912

REACTIONS (4)
  - Eye swelling [Recovered/Resolved]
  - Rash generalised [Recovered/Resolved]
  - Urticaria [Recovered/Resolved]
  - Swelling [Recovered/Resolved]
